FAERS Safety Report 18182452 (Version 1)
Quarter: 2020Q3

REPORT INFORMATION
  Report Type: Spontaneous
  Country: FR (occurrence: FR)
  Receive Date: 20200821
  Receipt Date: 20200821
  Transmission Date: 20201103
  Serious: Yes (Hospitalization, Disabling, Other)
  Sender: FDA-Public Use
  Company Number: PHHY2015FR109519

PATIENT
  Age: 85 Year
  Sex: Male

DRUGS (2)
  1. AMIODARONE [Suspect]
     Active Substance: AMIODARONE
     Indication: ATRIAL FIBRILLATION
  2. AMIODARONE [Suspect]
     Active Substance: AMIODARONE
     Indication: ISCHAEMIC STROKE
     Dosage: 200 MILLIGRAM, ONCE A DAY
     Route: 065

REACTIONS (9)
  - Abdominal pain [Unknown]
  - Hepatocellular injury [Unknown]
  - Fracture [Unknown]
  - Disability [Unknown]
  - Photosensitivity reaction [Unknown]
  - Cholestasis [Unknown]
  - Skin hyperpigmentation [Unknown]
  - Fall [Unknown]
  - Toxicity to various agents [Unknown]
